FAERS Safety Report 10413014 (Version 1)
Quarter: 2014Q3

REPORT INFORMATION
  Report Type: Spontaneous
  Country: US (occurrence: None)
  Receive Date: 20140826
  Receipt Date: 20140826
  Transmission Date: 20150326
  Serious: No
  Sender: FDA-Public Use
  Company Number: None

PATIENT
  Age: 65 Year
  Sex: Female
  Weight: 66.68 kg

DRUGS (2)
  1. HISTAMINE DIHYDROCHLORIDE. [Suspect]
     Active Substance: HISTAMINE DIHYDROCHLORIDE
     Indication: BACK PAIN
     Dates: start: 20140819, end: 20140825
  2. HISTAMINE DIHYDROCHLORIDE. [Suspect]
     Active Substance: HISTAMINE DIHYDROCHLORIDE
     Indication: ARTHRITIS
     Dates: start: 20140819, end: 20140825

REACTIONS (3)
  - Vertigo [None]
  - Dizziness [None]
  - Nausea [None]

NARRATIVE: CASE EVENT DATE: 20140825
